FAERS Safety Report 17165706 (Version 1)
Quarter: 2019Q4

REPORT INFORMATION
  Report Type: Spontaneous
  Country: IE (occurrence: IE)
  Receive Date: 20191217
  Receipt Date: 20191217
  Transmission Date: 20200122
  Serious: Yes (Other)
  Sender: FDA-Public Use
  Company Number: IE-JNJFOC-20191211603

PATIENT
  Age: 42 Year
  Sex: Female

DRUGS (3)
  1. TOPAMAX [Suspect]
     Active Substance: TOPIRAMATE
     Indication: TRIGEMINAL NEURALGIA
  2. TOPAMAX [Suspect]
     Active Substance: TOPIRAMATE
     Indication: FACIAL PAIN
  3. TOPAMAX [Suspect]
     Active Substance: TOPIRAMATE
     Indication: CRANIAL NERVE DISORDER
     Route: 048
     Dates: start: 201904, end: 201911

REACTIONS (45)
  - Loss of personal independence in daily activities [Recovering/Resolving]
  - Fall [Recovering/Resolving]
  - Vomiting [Recovering/Resolving]
  - Aggression [Recovering/Resolving]
  - Weight decreased [Recovering/Resolving]
  - Anaemia vitamin B12 deficiency [Recovering/Resolving]
  - Vertigo [Recovering/Resolving]
  - Insomnia [Recovering/Resolving]
  - Product use in unapproved indication [Unknown]
  - Urine ketone body present [Recovering/Resolving]
  - Mobility decreased [Recovering/Resolving]
  - Swelling face [Recovering/Resolving]
  - Motor dysfunction [Recovering/Resolving]
  - Dyspnoea [Recovering/Resolving]
  - Impaired quality of life [Recovering/Resolving]
  - Altered state of consciousness [Recovering/Resolving]
  - Crying [Recovering/Resolving]
  - Mydriasis [Recovering/Resolving]
  - Mood altered [Recovering/Resolving]
  - Hypoaesthesia [Recovering/Resolving]
  - Depression [Recovering/Resolving]
  - Back pain [Recovering/Resolving]
  - Taste disorder [Recovering/Resolving]
  - Polydipsia [Recovering/Resolving]
  - Oral pain [Recovering/Resolving]
  - Paranoia [Recovering/Resolving]
  - Constipation [Recovering/Resolving]
  - Feeling abnormal [Recovering/Resolving]
  - Tinnitus [Recovering/Resolving]
  - Peripheral coldness [Recovering/Resolving]
  - Metabolic acidosis [Recovering/Resolving]
  - Rhinitis [Recovering/Resolving]
  - Eye inflammation [Recovering/Resolving]
  - Heart rate irregular [Recovering/Resolving]
  - Syncope [Recovering/Resolving]
  - Angle closure glaucoma [Recovering/Resolving]
  - Aphasia [Recovering/Resolving]
  - Gait inability [Recovering/Resolving]
  - Memory impairment [Recovering/Resolving]
  - Hypotension [Recovering/Resolving]
  - Intraocular pressure increased [Recovering/Resolving]
  - Anxiety [Recovering/Resolving]
  - Off label use [Unknown]
  - Renal pain [Recovering/Resolving]
  - Alopecia [Recovering/Resolving]
